FAERS Safety Report 9315102 (Version 1)
Quarter: 2013Q2

REPORT INFORMATION
  Report Type: Spontaneous
  Country: GB (occurrence: GB)
  Receive Date: 20130529
  Receipt Date: 20130529
  Transmission Date: 20140414
  Serious: Yes (Other)
  Sender: FDA-Public Use
  Company Number: GB-TEVA-407954ISR

PATIENT
  Age: 27 Year
  Sex: Female

DRUGS (1)
  1. PREDNISOLONE [Suspect]
     Indication: LIVER TRANSPLANT
     Dosage: NOT STATED
     Route: 065

REACTIONS (1)
  - Infertility female [Unknown]
